FAERS Safety Report 8613244-X (Version None)
Quarter: 2012Q3

REPORT INFORMATION
  Report Type: 
  Country: None (occurrence: None)
  Receive Date: 20120822
  Receipt Date: 20120718
  Transmission Date: 20120928
  Serious: No
  Sender: FDA-Public Use
  Company Number: US-009507513-1207USA008205

PATIENT

DRUGS (1)
  1. AZASITE [Suspect]
     Dosage: 2 GTT, QD
     Route: 047
     Dates: start: 20120712, end: 20120717

REACTIONS (4)
  - UNDERDOSE [None]
  - INAPPROPRIATE SCHEDULE OF DRUG ADMINISTRATION [None]
  - PRODUCT PACKAGING QUANTITY ISSUE [None]
  - NO ADVERSE EVENT [None]
